FAERS Safety Report 9996064 (Version 1)
Quarter: 2014Q1

REPORT INFORMATION
  Report Type: Spontaneous
  Country: US (occurrence: US)
  Receive Date: 20140311
  Receipt Date: 20140311
  Transmission Date: 20141002
  Serious: Yes (Hospitalization)
  Sender: FDA-Public Use
  Company Number: US-B.I. PHARMACEUTICALS,INC./RIDGEFIELD-2014-BI-09877BP

PATIENT
  Age: 55 Year
  Sex: Male

DRUGS (4)
  1. COMBIVENT [Suspect]
     Indication: BRONCHITIS CHRONIC
     Dosage: DOSE PER APPLICATION: 20 MCG / 100 MCG; DAILY DOSE: 80 MCG / 400 MCG
     Route: 055
  2. COMBIVENT [Suspect]
     Indication: BRONCHITIS CHRONIC
     Dosage: DOSE PER APPLICATION: 18 MCG / 103 MCG; DAILY DOSE: 144 MCG / 824 MCG
     Route: 055
     Dates: start: 2009
  3. PROAIR [Concomitant]
     Indication: ASTHMA
     Dosage: 8 PUF
     Route: 055
     Dates: start: 201304
  4. DUO NEBULIZER TREATMENT [Concomitant]
     Indication: ASTHMA
     Route: 055

REACTIONS (7)
  - Large intestine perforation [Recovered/Resolved]
  - Intestinal obstruction [Recovered/Resolved]
  - Intestinal obstruction [Recovered/Resolved]
  - Hepatic failure [Recovered/Resolved]
  - Pneumonia [Recovered/Resolved]
  - Halo vision [Not Recovered/Not Resolved]
  - Visual impairment [Not Recovered/Not Resolved]
